FAERS Safety Report 9285966 (Version 2)
Quarter: 2013Q3

REPORT INFORMATION
  Report Type: Spontaneous
  Country: US (occurrence: US)
  Receive Date: 20130513
  Receipt Date: 20130906
  Transmission Date: 20140515
  Serious: Yes (Hospitalization, Other)
  Sender: FDA-Public Use
  Company Number: US-BAYER-2013-059023

PATIENT
  Age: 28 Year
  Sex: Female
  Weight: 71.66 kg

DRUGS (8)
  1. YAZ [Suspect]
     Dosage: UNK
     Dates: start: 2004, end: 2005
  2. YASMIN [Suspect]
     Dosage: UNK
     Dates: start: 2004, end: 2005
  3. OCELLA [Suspect]
     Dosage: UNK
     Dates: start: 2004, end: 2005
  4. RELPAX [Concomitant]
     Dosage: 40 MG, UNK
     Dates: start: 20050302
  5. PERCOCET [Concomitant]
     Dosage: UNK
     Dates: start: 20050302
  6. PROZAC [Concomitant]
     Dosage: 20 MG, UNK
     Dates: start: 20050302
  7. FLUOXETINE [Concomitant]
     Dosage: 20 MG, UNK
  8. MORPHINE SULFATE [Concomitant]
     Indication: PAIN MANAGEMENT

REACTIONS (10)
  - Thrombophlebitis superficial [None]
  - Deep vein thrombosis [None]
  - Thrombosis [None]
  - Injury [None]
  - Pain [None]
  - Emotional distress [None]
  - General physical health deterioration [None]
  - Anxiety [None]
  - Abdominal pain [None]
  - Pain [None]
